FAERS Safety Report 7007279-0 (Version None)
Quarter: 2010Q3

REPORT INFORMATION
  Report Type: 
  Country: None (occurrence: None)
  Receive Date: 20100922
  Receipt Date: 20100913
  Transmission Date: 20110219
  Serious: Yes (Other)
  Sender: FDA-Public Use
  Company Number: PHHY2010CO60888

PATIENT
  Sex: Female

DRUGS (3)
  1. DIOVAN [Suspect]
     Indication: HYPERTENSION
     Dosage: 1 TABLET 80 MG IN THE MORNING
     Route: 048
     Dates: start: 20020201, end: 20100901
  2. AMLODIPINE [Concomitant]
  3. OMEPRAZOLE [Concomitant]

REACTIONS (2)
  - EPISTAXIS [None]
  - HAEMATOMA [None]
